FAERS Safety Report 25149928 (Version 1)
Quarter: 2025Q2

REPORT INFORMATION
  Report Type: Spontaneous
  Country: AU (occurrence: AU)
  Receive Date: 20250402
  Receipt Date: 20250402
  Transmission Date: 20250717
  Serious: Yes (Death, Hospitalization, Other)
  Sender: GALPHARM INTERNATIONAL
  Company Number: AU-ASPEN-AUS2025AU000742

PATIENT
  Age: 68 Year
  Sex: Female

DRUGS (4)
  1. IBUPROFEN [Suspect]
     Active Substance: IBUPROFEN
     Indication: Musculoskeletal chest pain
     Route: 065
  2. ACETAMINOPHEN [Suspect]
     Active Substance: ACETAMINOPHEN
     Indication: Musculoskeletal chest pain
     Route: 065
  3. CODEINE [Suspect]
     Active Substance: CODEINE
     Indication: Musculoskeletal chest pain
     Route: 065
  4. MORPHINE [Suspect]
     Active Substance: MORPHINE
     Indication: Product used for unknown indication
     Route: 065

REACTIONS (12)
  - Acute coronary syndrome [Fatal]
  - Acute myocardial infarction [Fatal]
  - Cardiac arrest [Fatal]
  - Haemorrhage coronary artery [Fatal]
  - Haemothorax [Fatal]
  - Pericardial haemorrhage [Fatal]
  - Pericardial rupture [Fatal]
  - Ventricle rupture [Fatal]
  - Abdominal pain [Unknown]
  - Nausea [Unknown]
  - Self-medication [Unknown]
  - Off label use [Unknown]
